FAERS Safety Report 17760104 (Version 1)
Quarter: 2020Q2

REPORT INFORMATION
  Report Type: Spontaneous
  Country: US (occurrence: US)
  Receive Date: 20200507
  Receipt Date: 20200507
  Transmission Date: 20200714
  Serious: Yes (Death)
  Sender: FDA-Public Use
  Company Number: None

PATIENT
  Sex: Female

DRUGS (19)
  1. ELIQUIS [Concomitant]
     Active Substance: APIXABAN
  2. LIDOCAINE. [Concomitant]
     Active Substance: LIDOCAINE
  3. METFORMIN [Concomitant]
     Active Substance: METFORMIN HYDROCHLORIDE
  4. PROMETHAZINE [Concomitant]
     Active Substance: PROMETHAZINE HYDROCHLORIDE
  5. EVEROLIMUS 5MG (7 TAB/CARD) [Suspect]
     Active Substance: EVEROLIMUS
     Indication: MALIGNANT NEOPLASM OF RENAL PELVIS
     Route: 048
     Dates: start: 20191226
  6. PREDNISONE. [Concomitant]
     Active Substance: PREDNISONE
  7. SANCUSO [Concomitant]
     Active Substance: GRANISETRON
  8. VIRTUSSIN AC [Concomitant]
     Active Substance: CODEINE PHOSPHATE\GUAIFENESIN
  9. DEXAMETHASON ELX [Concomitant]
  10. LORAZEPAM. [Concomitant]
     Active Substance: LORAZEPAM
  11. NYSTATIN. [Concomitant]
     Active Substance: NYSTATIN
  12. PREDNISOLONE. [Concomitant]
     Active Substance: PREDNISOLONE
  13. AMOX/K CLAV [Concomitant]
     Active Substance: AMOXICILLIN\CLAVULANATE POTASSIUM
  14. OXYCODONE [Concomitant]
     Active Substance: OXYCODONE
  15. PROMETHEGAN [Concomitant]
     Active Substance: PROMETHAZINE HYDROCHLORIDE
  16. FENTANYL. [Concomitant]
     Active Substance: FENTANYL
  17. AZITHROMYCIN ANHYDROUS. [Concomitant]
     Active Substance: AZITHROMYCIN ANHYDROUS
  18. LACTULOSE. [Concomitant]
     Active Substance: LACTULOSE
  19. LIDO/PRILOCN [Concomitant]

REACTIONS (1)
  - Death [None]
